FAERS Safety Report 8925334 (Version 2)
Quarter: 2012Q4

REPORT INFORMATION
  Report Type: 
  Country: DE (occurrence: DE)
  Receive Date: 20121126
  Receipt Date: 20121211
  Transmission Date: 20130627
  Serious: Yes (Life-Threatening, Hospitalization, Other)
  Sender: FDA-Public Use
  Company Number: DE-MPIJNJ-2012-08221

PATIENT

DRUGS (7)
  1. VELCADE [Suspect]
     Indication: MULTIPLE MYELOMA
     Dosage: UNK
     Route: 042
     Dates: end: 201209
  2. VELCADE [Suspect]
     Indication: PLASMACYTOMA
  3. THALIDOMIDE [Concomitant]
     Dosage: UNK
     Dates: end: 20121010
  4. DEXAMETHASONE [Concomitant]
     Dosage: UNK
     Dates: end: 201209
  5. ACETYLSALICYLIC ACID [Concomitant]
     Dosage: 100 mg, UNK
  6. PANTOPRAZOL [Concomitant]
     Dosage: 40 mg, UNK
  7. AREDIA [Concomitant]
     Indication: OSTEOPOROSIS PROPHYLAXIS

REACTIONS (2)
  - Colitis [Recovering/Resolving]
  - Lumbar vertebral fracture [Unknown]
